FAERS Safety Report 11290073 (Version 1)
Quarter: 2015Q3

REPORT INFORMATION
  Report Type: Spontaneous
  Country: US (occurrence: US)
  Receive Date: 20150721
  Receipt Date: 20150721
  Transmission Date: 20151125
  Serious: No
  Sender: FDA-Public Use
  Company Number: US-009507513-1507USA009469

PATIENT
  Sex: Male

DRUGS (2)
  1. SYLATRON [Suspect]
     Active Substance: PEGINTERFERON ALFA-2B
     Indication: NODULE
     Dosage: ROUTE: ^SHOT^
     Dates: start: 20140718
  2. SYLATRON [Suspect]
     Active Substance: PEGINTERFERON ALFA-2B
     Dosage: ROUTE: ^SHOT^

REACTIONS (2)
  - Asthenia [Unknown]
  - Malaise [Unknown]
